FAERS Safety Report 25425092 (Version 1)
Quarter: 2025Q2

REPORT INFORMATION
  Report Type: Spontaneous
  Country: NL (occurrence: NL)
  Receive Date: 20250611
  Receipt Date: 20250611
  Transmission Date: 20250717
  Serious: Yes (Other)
  Sender: BRISTOL-MYERS SQUIBB COMPANY
  Company Number: NL-BRISTOL-MYERS SQUIBB COMPANY-2025-083047

PATIENT
  Age: 55 Year
  Sex: Female

DRUGS (1)
  1. OPDIVO [Suspect]
     Active Substance: NIVOLUMAB
     Indication: Malignant melanoma
     Dates: start: 202409

REACTIONS (2)
  - Gastrointestinal necrosis [Unknown]
  - Peritonitis [Unknown]

NARRATIVE: CASE EVENT DATE: 20250303
